FAERS Safety Report 21790259 (Version 1)
Quarter: 2022Q4

REPORT INFORMATION
  Report Type: Spontaneous
  Country: CN (occurrence: CN)
  Receive Date: 20221228
  Receipt Date: 20221228
  Transmission Date: 20230112
  Serious: Yes (Other)
  Sender: FDA-Public Use
  Company Number: CN-HALEON-CNCH2022APC051953

PATIENT

DRUGS (2)
  1. IBUPROFEN [Suspect]
     Active Substance: IBUPROFEN
     Indication: COVID-19
     Dosage: 300 MG, BID
     Route: 048
     Dates: start: 20221217, end: 20221217
  2. HERBALS [Suspect]
     Active Substance: HERBALS
     Indication: COVID-19
     Dosage: 4 DF, TID
     Route: 048
     Dates: start: 20221217, end: 20221217

REACTIONS (6)
  - Angioedema [Recovered/Resolved]
  - Lip oedema [Recovered/Resolved]
  - Eyelid oedema [Recovered/Resolved]
  - Dysphonia [Recovered/Resolved]
  - Discomfort [Recovered/Resolved]
  - Off label use [Recovered/Resolved]

NARRATIVE: CASE EVENT DATE: 20221217
